FAERS Safety Report 8926493 (Version 2)
Quarter: 2013Q1

REPORT INFORMATION
  Report Type: Report from Study
  Country: JP (occurrence: JP)
  Receive Date: 20121127
  Receipt Date: 20130215
  Transmission Date: 20140127
  Serious: Yes (Other)
  Sender: FDA-Public Use
  Company Number: PHHY2012JP108397

PATIENT
  Sex: 0

DRUGS (8)
  1. AMN107 [Suspect]
  2. TAKEPRON [Concomitant]
     Dosage: 15 MG, UNK
     Route: 048
     Dates: start: 200804
  3. DAONIL [Concomitant]
     Dosage: 5.0 MG, UNK
  4. DAONIL [Concomitant]
     Dosage: 7.5 MG, UNK
  5. URSO [Concomitant]
     Dosage: 300 MG, UNK
     Route: 048
     Dates: start: 20110926
  6. ATELEC [Concomitant]
     Dosage: 10 MG, UNK
     Route: 048
     Dates: start: 20110926
  7. MUCOSTA [Concomitant]
     Dosage: 300 MG, UNK
     Dates: start: 20110926
  8. ACTOS [Concomitant]
     Indication: PROPHYLAXIS
     Dosage: 15 MG, UNK
     Route: 048
     Dates: start: 20110926

REACTIONS (5)
  - Blood glucose increased [Recovered/Resolved]
  - Blood alkaline phosphatase increased [Not Recovered/Not Resolved]
  - Gamma-glutamyltransferase increased [Not Recovered/Not Resolved]
  - Aspartate aminotransferase increased [Not Recovered/Not Resolved]
  - Anaemia [Not Recovered/Not Resolved]
